FAERS Safety Report 8070996-8 (Version None)
Quarter: 2012Q1

REPORT INFORMATION
  Report Type: 
  Country: None (occurrence: None)
  Receive Date: 20120119
  Receipt Date: 20120113
  Transmission Date: 20120608
  Serious: Yes (Other)
  Sender: FDA-Public Use
  Company Number: A0961283A

PATIENT
  Age: 63 Year
  Sex: Female

DRUGS (1)
  1. ASPIRIN  + CAFFEINE + PARACETAMOL (FORMULATION UNNOWN) (ACETAMINOPHEN [Suspect]
     Dosage: ORAL
     Route: 048

REACTIONS (4)
  - HEPATIC ENZYME INCREASED [None]
  - DRUG ADMINISTRATION ERROR [None]
  - INADEQUATE ANALGESIA [None]
  - DEPENDENCE [None]
